FAERS Safety Report 19922836 (Version 3)
Quarter: 2022Q1

REPORT INFORMATION
  Report Type: Spontaneous
  Country: US (occurrence: US)
  Receive Date: 20211005
  Receipt Date: 20220329
  Transmission Date: 20220424
  Serious: No
  Sender: FDA-Public Use
  Company Number: US-AVEO ONCOLOGY-2021-AVEO-US003454

PATIENT

DRUGS (41)
  1. FOTIVDA [Suspect]
     Active Substance: TIVOZANIB HYDROCHLORIDE
     Indication: Renal cell carcinoma
     Dosage: 0.89 MG, DAILY TAKE ONE CAPSULE ON DAYS 1-28
     Route: 048
     Dates: start: 20210528
  2. FOTIVDA [Suspect]
     Active Substance: TIVOZANIB HYDROCHLORIDE
     Dosage: 1.34 MG, CYCLIC
     Route: 048
  3. FOTIVDA [Suspect]
     Active Substance: TIVOZANIB HYDROCHLORIDE
     Dosage: 0.89 MG, DAILY FOR 21 DAYS THEN 7 DAYS OFF
     Route: 048
     Dates: start: 20210611
  4. FOTIVDA [Suspect]
     Active Substance: TIVOZANIB HYDROCHLORIDE
     Dosage: 0.89 MG DAILY ON DAYS 1-21 EVERY 28 DAYS
     Route: 048
     Dates: start: 20210826, end: 20211207
  5. ZOFRAN [Concomitant]
     Active Substance: ONDANSETRON HYDROCHLORIDE
     Dosage: 4 MG
  6. SOLU-CORTEF [Concomitant]
     Active Substance: HYDROCORTISONE SODIUM SUCCINATE
     Dosage: 100 MG
  7. SEMAGLUTIDE [Concomitant]
     Active Substance: SEMAGLUTIDE
  8. OMEPRAZOLE [Concomitant]
     Active Substance: OMEPRAZOLE
     Dosage: 40 MG
  9. NOVOLOG [Concomitant]
     Active Substance: INSULIN ASPART
     Dosage: 100 MG/DL
  10. NORCO [Concomitant]
     Active Substance: ACETAMINOPHEN\HYDROCODONE BITARTRATE
     Dosage: 10-325 MG
  11. VITAMINS [Concomitant]
     Active Substance: VITAMINS
  12. MELATONIN [Concomitant]
     Active Substance: MELATONIN
     Dosage: 10 MG
  13. HYDROCORTISONE [Concomitant]
     Active Substance: HYDROCORTISONE
     Dosage: 5 MG
  14. HYDRALAZINE HCL [Concomitant]
     Active Substance: HYDRALAZINE HYDROCHLORIDE
     Dosage: 50 MG
  15. Heparin sodium lock flush [Concomitant]
  16. GABAPENTIN [Concomitant]
     Active Substance: GABAPENTIN
     Dosage: 300 MG
  17. CORTEF [Concomitant]
     Active Substance: HYDROCORTISONE
     Dosage: 10 MG
  18. CETIRIZINE HCL [Concomitant]
     Active Substance: CETIRIZINE HYDROCHLORIDE
     Dosage: 10 MG
  19. CARVEDILOL [Concomitant]
     Active Substance: CARVEDILOL
     Dosage: 25 MG
  20. LEVEMIR [Concomitant]
     Active Substance: INSULIN DETEMIR
  21. ACETAMINOPHEN [Concomitant]
     Active Substance: ACETAMINOPHEN
  22. ALPRAZOLAM [Concomitant]
     Active Substance: ALPRAZOLAM
  23. ATORVASTATIN [Concomitant]
     Active Substance: ATORVASTATIN
  24. DEXAMETHASONE [Concomitant]
     Active Substance: DEXAMETHASONE
  25. DICLOFENAC [Concomitant]
     Active Substance: DICLOFENAC
  26. EPINEPHRINE [Concomitant]
     Active Substance: EPINEPHRINE
  27. ESCITALOPRAM [Concomitant]
     Active Substance: ESCITALOPRAM OXALATE
  28. FERROUS SULFATE [Concomitant]
     Active Substance: FERROUS SULFATE
  29. FOLBIC [Concomitant]
     Active Substance: CYANOCOBALAMIN\FOLIC ACID\PYRIDOXINE
  30. LEVOTHYROXINE SODIUM [Concomitant]
     Active Substance: LEVOTHYROXINE SODIUM
  31. PHENERGAN [Concomitant]
     Active Substance: PROMETHAZINE HYDROCHLORIDE
  32. PANTOPRAZOLE [Concomitant]
     Active Substance: PANTOPRAZOLE
  33. TIZANIDINE [Concomitant]
     Active Substance: TIZANIDINE
  34. TRAMADOL [Concomitant]
     Active Substance: TRAMADOL
  35. ZOLOFT [Concomitant]
     Active Substance: SERTRALINE HYDROCHLORIDE
  36. MIRALAX [Concomitant]
     Active Substance: POLYETHYLENE GLYCOL 3350
  37. ASPIRIN [Concomitant]
     Active Substance: ASPIRIN
  38. AMLODIPINE [Concomitant]
     Active Substance: AMLODIPINE BESYLATE
     Dosage: UNK
  39. LOSARTAN POTASSIUM ACCORD [Concomitant]
     Dosage: UNK
  40. CALCIUM CARBONATE PCH [Concomitant]
     Dosage: UNK
  41. ZOFRAN [Concomitant]
     Active Substance: ONDANSETRON HYDROCHLORIDE

REACTIONS (8)
  - Fatigue [Unknown]
  - Decreased appetite [Unknown]
  - Dyspepsia [Unknown]
  - Asthenia [Unknown]
  - Dyspnoea [Unknown]
  - Somnolence [Unknown]
  - Constipation [Unknown]
  - Myalgia [Unknown]

NARRATIVE: CASE EVENT DATE: 20210701
